FAERS Safety Report 23558084 (Version 3)
Quarter: 2024Q2

REPORT INFORMATION
  Report Type: Spontaneous
  Country: US (occurrence: US)
  Receive Date: 20240223
  Receipt Date: 20240403
  Transmission Date: 20240716
  Serious: No
  Sender: FDA-Public Use
  Company Number: US-ALEMBIC PHARMACUETICALS LIMITED-2024SCAL000097

PATIENT

DRUGS (3)
  1. ASENAPINE [Suspect]
     Active Substance: ASENAPINE
     Indication: Major depression
     Dosage: 5 MG, BID
     Route: 060
     Dates: start: 202309
  2. ASENAPINE [Suspect]
     Active Substance: ASENAPINE
     Indication: Bipolar I disorder
     Dosage: 5 MG, BID
     Route: 060
     Dates: start: 202401
  3. ASENAPINE [Suspect]
     Active Substance: ASENAPINE
     Indication: Mania
     Dosage: 5 MG, BID
     Route: 060
     Dates: start: 20240222

REACTIONS (1)
  - Tongue discomfort [Recovered/Resolved]
